FAERS Safety Report 5957983-8 (Version None)
Quarter: 2008Q4

REPORT INFORMATION
  Report Type: 
  Country: None (occurrence: None)
  Receive Date: 20081119
  Receipt Date: 20081107
  Transmission Date: 20090506
  Serious: Yes (Hospitalization)
  Sender: FDA-Public Use
  Company Number: FR-WYE-H06801508

PATIENT
  Sex: Female

DRUGS (7)
  1. INIPOMP [Suspect]
     Dosage: UNKNOWN
     Route: 048
     Dates: start: 20071227, end: 20080119
  2. TEGRETOL [Suspect]
     Dosage: UNKNOWN
     Route: 048
     Dates: start: 20071227, end: 20080119
  3. VITABACT [Concomitant]
     Dosage: UNKNOWN
     Route: 047
  4. LAROXYL [Concomitant]
     Dosage: UNKNOWN
     Route: 048
     Dates: start: 20071227, end: 20080119
  5. CALCIDIA [Concomitant]
     Dosage: UNKNOWN
     Route: 048
  6. LOMEXIN ^GRUENENTHAL^ [Concomitant]
     Dosage: UNKNOWN
  7. RIVOTRIL [Concomitant]
     Dosage: UNKNOWN
     Route: 048
     Dates: start: 20071227, end: 20080116

REACTIONS (6)
  - CYTOLYTIC HEPATITIS [None]
  - DRUG RASH WITH EOSINOPHILIA AND SYSTEMIC SYMPTOMS [None]
  - EOSINOPHILIA [None]
  - FACE OEDEMA [None]
  - LYMPHADENOPATHY [None]
  - TOXIC SKIN ERUPTION [None]
